FAERS Safety Report 6207189-2 (Version None)
Quarter: 2009Q2

REPORT INFORMATION
  Report Type: 
  Country: None (occurrence: None)
  Receive Date: 20090528
  Receipt Date: 20090521
  Transmission Date: 20091009
  Serious: Yes (Hospitalization)
  Sender: FDA-Public Use
  Company Number: US-ABBOTT-09P-163-0575379-00

PATIENT
  Sex: Female
  Weight: 41.314 kg

DRUGS (1)
  1. LUPRON DEPOT-PED [Suspect]
     Indication: PRECOCIOUS PUBERTY
     Route: 030
     Dates: start: 20081201

REACTIONS (4)
  - DRUG DOSE OMISSION [None]
  - PYREXIA [None]
  - TYPE 2 DIABETES MELLITUS [None]
  - WHITE BLOOD CELL COUNT INCREASED [None]
